FAERS Safety Report 7981264-4 (Version None)
Quarter: 2011Q4

REPORT INFORMATION
  Report Type: 
  Country: None (occurrence: None)
  Receive Date: 20111215
  Receipt Date: 20111212
  Transmission Date: 20120403
  Serious: Yes (Other)
  Sender: FDA-Public Use
  Company Number: US-PFIZER INC-2011302572

PATIENT
  Sex: Male

DRUGS (2)
  1. ZOLOFT [Suspect]
     Dosage: 50 MG, UNK
     Route: 048
     Dates: start: 19950101, end: 19950101
  2. ZOLOFT [Suspect]
     Dosage: 200 MG, UNK
     Route: 048
     Dates: start: 19950101, end: 20090101

REACTIONS (1)
  - GRAND MAL CONVULSION [None]
